FAERS Safety Report 5677601-6 (Version None)
Quarter: 2008Q1

REPORT INFORMATION
  Report Type: 
  Country: None (occurrence: None)
  Receive Date: 20080324
  Receipt Date: 20080314
  Transmission Date: 20080703
  Serious: Yes (Death)
  Sender: FDA-Public Use
  Company Number: PHBS2007JP16519

PATIENT
  Age: 56 Year
  Sex: Male

DRUGS (5)
  1. PREDONINE [Suspect]
     Indication: NEPHRITIS
     Dosage: 60 MG/DAY
     Route: 048
     Dates: start: 20060522
  2. PREDONINE [Suspect]
     Dosage: 40 MG/DAY
     Route: 048
     Dates: end: 20060622
  3. NEORAL [Suspect]
     Indication: NEPHRITIS
     Dosage: 150 MG/DAY
     Route: 048
     Dates: start: 20060609, end: 20060622
  4. PARIET [Concomitant]
     Dosage: 10 MG/DAY
     Route: 048
     Dates: start: 20060512, end: 20060622
  5. BAKTAR [Concomitant]
     Dosage: 1 G/DAY
     Route: 048
     Dates: start: 20060522, end: 20060622

REACTIONS (6)
  - ANAEMIA [None]
  - CYTOMEGALOVIRUS ENTEROCOLITIS [None]
  - GASTROINTESTINAL ULCER HAEMORRHAGE [None]
  - HAEMATOCHEZIA [None]
  - MELAENA [None]
  - SHOCK HAEMORRHAGIC [None]
